FAERS Safety Report 6086829-5 (Version None)
Quarter: 2009Q1

REPORT INFORMATION
  Report Type: 
  Country: None (occurrence: None)
  Receive Date: 20090223
  Receipt Date: 20090209
  Transmission Date: 20090719
  Serious: Yes (Hospitalization)
  Sender: FDA-Public Use
  Company Number: ES-ELI_LILLY_AND_COMPANY-ES200902002713

PATIENT
  Age: 76 Year
  Sex: Female

DRUGS (5)
  1. FORTEO [Suspect]
     Indication: OSTEOPOROSIS
     Dosage: 20 UG, UNKNOWN
     Route: 058
     Dates: start: 20081001
  2. METFORMIN [Concomitant]
     Indication: BLOOD GLUCOSE
     Dosage: UNK, UNKNOWN
     Route: 065
  3. TRANKIMAZIN [Concomitant]
     Dosage: 18 D/F, UNKNOWN
     Route: 065
  4. OMEPRAZOLE [Concomitant]
     Dosage: UNK, UNKNOWN
     Route: 065
  5. ORFIDAL [Concomitant]
     Indication: NERVOUSNESS
     Dosage: UNK, UNKNOWN
     Route: 065

REACTIONS (1)
  - CHOLELITHIASIS [None]
